FAERS Safety Report 7874800-X (Version None)
Quarter: 2011Q4

REPORT INFORMATION
  Report Type: 
  Country: None (occurrence: None)
  Receive Date: 20111031
  Receipt Date: 20111027
  Transmission Date: 20120403
  Serious: Yes (Hospitalization)
  Sender: FDA-Public Use
  Company Number: CN-BAYER-2011-104777

PATIENT
  Age: 56 Year
  Sex: Male
  Weight: 53 kg

DRUGS (5)
  1. AMLODIPINE [Concomitant]
     Dosage: 5 MG, BID
     Dates: start: 20110921
  2. AMLODIPINE [Concomitant]
     Indication: HYPERTENSION
     Dosage: 5 MG, BID
     Dates: start: 20110914, end: 20110920
  3. SORAFENIB (RAF KINASE INHIBITOR) [Suspect]
     Indication: HEPATIC NEOPLASM MALIGNANT
     Dosage: 400 MG, BID
     Route: 048
     Dates: start: 20110914, end: 20111004
  4. LAMIVUDINE [Concomitant]
     Indication: HEPATITIS B
     Dosage: 100 MG, QD
     Dates: start: 20010902
  5. ABT-869 (LINIFANIB) [Suspect]
     Indication: HEPATIC NEOPLASM MALIGNANT
     Dosage: UNK

REACTIONS (2)
  - ASCITES [None]
  - INTESTINAL OBSTRUCTION [None]
